FAERS Safety Report 7832842-4 (Version None)
Quarter: 2011Q4

REPORT INFORMATION
  Report Type: 
  Country: None (occurrence: None)
  Receive Date: 20111024
  Receipt Date: 20111012
  Transmission Date: 20120403
  Serious: No
  Sender: FDA-Public Use
  Company Number: US-BIOGENIDEC-2011BI039251

PATIENT
  Age: 53 Year
  Sex: Female

DRUGS (5)
  1. AVONEX [Suspect]
     Route: 030
     Dates: start: 19970601
  2. APRALOZAM [Concomitant]
     Indication: ANXIETY
     Dates: start: 19910101
  3. PREDNISONE [Concomitant]
     Indication: PREMEDICATION
  4. AVONEX [Suspect]
     Indication: MULTIPLE SCLEROSIS
     Route: 030
  5. AVONEX [Suspect]
     Route: 030

REACTIONS (9)
  - INJECTION SITE HAEMATOMA [None]
  - INJECTION SITE HAEMORRHAGE [None]
  - INJECTION SITE INFECTION [None]
  - OEDEMA PERIPHERAL [None]
  - INJECTION SITE PAIN [None]
  - HEADACHE [None]
  - CHILLS [None]
  - DYSKINESIA [None]
  - DYSPNOEA [None]
